FAERS Safety Report 23850576 (Version 2)
Quarter: 2024Q3

REPORT INFORMATION
  Report Type: Spontaneous
  Country: PL (occurrence: PL)
  Receive Date: 20240513
  Receipt Date: 20240704
  Transmission Date: 20241016
  Serious: Yes (Other)
  Sender: JOHNSON AND JOHNSON
  Company Number: PL-JNJFOC-20240523145

PATIENT
  Age: 69 Year
  Sex: Male

DRUGS (5)
  1. ERLEADA [Suspect]
     Active Substance: APALUTAMIDE
     Indication: Prostate cancer metastatic
     Dosage: 60X4
     Route: 048
     Dates: start: 20230928
  2. METOPROLOL TARTRATE [Concomitant]
     Active Substance: METOPROLOL TARTRATE
     Dosage: 47.5
  3. RAMIPRIL [Concomitant]
     Active Substance: RAMIPRIL
  4. ATORVASTATIN [Concomitant]
     Active Substance: ATORVASTATIN
  5. ASPIRIN [Concomitant]
     Active Substance: ASPIRIN
     Dosage: 75

REACTIONS (1)
  - Pulmonary mass [Unknown]
